FAERS Safety Report 6582563-3 (Version None)
Quarter: 2010Q1

REPORT INFORMATION
  Report Type: 
  Country: None (occurrence: None)
  Receive Date: 20100212
  Receipt Date: 20100212
  Transmission Date: 20100710
  Serious: Yes (Life-Threatening)
  Sender: FDA-Public Use
  Company Number: None

PATIENT
  Age: 64 Year
  Sex: Male
  Weight: 91.7 kg

DRUGS (1)
  1. BORTEZOMIB [Suspect]
     Indication: MULTIPLE MYELOMA
     Dosage: 3.5 MG QWEEK IV
     Route: 042
     Dates: start: 20091210

REACTIONS (1)
  - TREATMENT NONCOMPLIANCE [None]
